FAERS Safety Report 5484599-2 (Version None)
Quarter: 2007Q4

REPORT INFORMATION
  Report Type: 
  Country: None (occurrence: None)
  Receive Date: 20071012
  Receipt Date: 20071003
  Transmission Date: 20080405
  Serious: Yes (Hospitalization, Other)
  Sender: FDA-Public Use
  Company Number: US-PFIZER INC-2006009227

PATIENT
  Sex: Female
  Weight: 85.3 kg

DRUGS (7)
  1. XANAX [Suspect]
     Indication: ANXIETY
     Route: 048
     Dates: start: 19850101, end: 20060101
  2. XANAX [Suspect]
  3. XANAX XR [Suspect]
     Indication: ANXIETY
     Route: 048
     Dates: start: 20060109
  4. ATENOLOL [Concomitant]
     Indication: HYPERTENSION
     Route: 048
  5. WELLBUTRIN [Concomitant]
     Indication: DEPRESSION
     Route: 048
  6. AVAPRO [Concomitant]
     Indication: HYPERTENSION
     Route: 048
  7. METHADONE HCL [Concomitant]

REACTIONS (25)
  - ANXIETY [None]
  - ARTHRITIS [None]
  - ARTHROSCOPY [None]
  - ATRIOVENTRICULAR BLOCK [None]
  - BACK PAIN [None]
  - BLOOD CHOLESTEROL INCREASED [None]
  - BLOOD PRESSURE INCREASED [None]
  - CORONARY ARTERY BYPASS [None]
  - DEEP VEIN THROMBOSIS [None]
  - DEPRESSION [None]
  - DUODENITIS [None]
  - GASTRITIS [None]
  - HAEMORRHOIDS [None]
  - HEADACHE [None]
  - HEART RATE INCREASED [None]
  - HIP ARTHROPLASTY [None]
  - MONOCYTE PERCENTAGE INCREASED [None]
  - NAUSEA [None]
  - NEUTROPHIL COUNT DECREASED [None]
  - OESOPHAGEAL ULCER [None]
  - RETCHING [None]
  - SALIVA ALTERED [None]
  - URINARY TRACT INFECTION [None]
  - VENTRICULAR EXTRASYSTOLES [None]
  - WHITE BLOOD CELL COUNT DECREASED [None]
